FAERS Safety Report 5772934-7 (Version None)
Quarter: 2008Q2

REPORT INFORMATION
  Report Type: 
  Country: None (occurrence: None)
  Receive Date: 20080613
  Receipt Date: 20080603
  Transmission Date: 20081010
  Serious: Yes (Other)
  Sender: FDA-Public Use
  Company Number: BE-PFIZER INC-2008047247

PATIENT
  Sex: Female

DRUGS (1)
  1. CHANTIX [Suspect]
     Dosage: DAILY DOSE:1MG
     Route: 048

REACTIONS (3)
  - ANXIETY [None]
  - CONFUSIONAL STATE [None]
  - DELUSIONAL DISORDER, PERSECUTORY TYPE [None]
